FAERS Safety Report 10244721 (Version 3)
Quarter: 2016Q2

REPORT INFORMATION
  Report Type: Spontaneous
  Country: US (occurrence: US)
  Receive Date: 20140618
  Receipt Date: 20160418
  Transmission Date: 20160815
  Serious: No
  Sender: FDA-Public Use
  Company Number: US-PFIZER INC-2014163155

PATIENT
  Age: 61 Year
  Sex: Male
  Weight: 80.73 kg

DRUGS (3)
  1. LISINOPRIL AND HYDROCHLOROTHIAZIDE [Concomitant]
     Active Substance: HYDROCHLOROTHIAZIDE\LISINOPRIL
     Dosage: [LISINOPRIL 10 MG]/[HYDROCHLOROTHIAZIDE 12.5 MG], DAILY
  2. ATENOLOL. [Concomitant]
     Active Substance: ATENOLOL
     Dosage: 100 MG, DAILY
  3. LYRICA [Suspect]
     Active Substance: PREGABALIN
     Indication: NEUROPATHY PERIPHERAL
     Dosage: 300 MG, 3X/DAY
     Dates: start: 20140401

REACTIONS (5)
  - Intentional product misuse [Unknown]
  - Prescribed overdose [Unknown]
  - Drug ineffective [Unknown]
  - Peripheral swelling [Recovering/Resolving]
  - Constipation [Unknown]

NARRATIVE: CASE EVENT DATE: 2014
